FAERS Safety Report 20128364 (Version 3)
Quarter: 2022Q1

REPORT INFORMATION
  Report Type: Report from Study
  Country: CA (occurrence: CA)
  Receive Date: 20211130
  Receipt Date: 20220316
  Transmission Date: 20220423
  Serious: Yes (Hospitalization, Other)
  Sender: FDA-Public Use
  Company Number: CA-JNJFOC-20210517754

PATIENT
  Age: 3 Decade
  Sex: Female
  Weight: 50 kg

DRUGS (7)
  1. MACITENTAN [Suspect]
     Active Substance: MACITENTAN
     Indication: Pulmonary arterial hypertension
     Route: 048
     Dates: start: 202007, end: 20210428
  2. MACITENTAN [Suspect]
     Active Substance: MACITENTAN
     Route: 048
     Dates: start: 201902, end: 202004
  3. RIFAMPIN [Interacting]
     Active Substance: RIFAMPIN
     Indication: Tuberculosis
     Route: 048
     Dates: start: 20210410
  4. PLAQUENIL [Concomitant]
     Active Substance: HYDROXYCHLOROQUINE SULFATE
     Indication: Mixed connective tissue disease
     Route: 048
     Dates: start: 20190822, end: 202003
  5. PREDNISONE [Concomitant]
     Active Substance: PREDNISONE
     Indication: Mixed connective tissue disease
     Route: 048
     Dates: start: 20190822, end: 202003
  6. TRAMADOL [Concomitant]
     Active Substance: TRAMADOL
     Indication: Pain management
     Route: 048
     Dates: start: 20190822
  7. FERROUS FUMARATE [Concomitant]
     Active Substance: FERROUS FUMARATE
     Indication: Iron deficiency anaemia
     Route: 048
     Dates: start: 20200229

REACTIONS (3)
  - Tuberculosis [Recovered/Resolved]
  - Right ventricular dysfunction [Not Recovered/Not Resolved]
  - Drug interaction [Not Recovered/Not Resolved]

NARRATIVE: CASE EVENT DATE: 20210410
